FAERS Safety Report 6407447-2 (Version None)
Quarter: 2009Q4

REPORT INFORMATION
  Report Type: 
  Country: None (occurrence: None)
  Receive Date: 20091020
  Receipt Date: 20091016
  Transmission Date: 20100525
  Serious: Yes (Hospitalization)
  Sender: FDA-Public Use
  Company Number: US-ALLERGAN-0914168US

PATIENT
  Age: 62 Year
  Sex: Female
  Weight: 46.259 kg

DRUGS (2)
  1. BOTOX [Suspect]
     Indication: TORTICOLLIS
     Dosage: 50 UNITS, SINGLE
     Route: 030
     Dates: start: 20090929, end: 20090929
  2. BOTOX [Suspect]
     Dosage: UNK
     Route: 030
     Dates: start: 20090601, end: 20090601

REACTIONS (5)
  - DECREASED APPETITE [None]
  - DYSPHAGIA [None]
  - MUSCLE TIGHTNESS [None]
  - MUSCULAR WEAKNESS [None]
  - SPEECH DISORDER [None]
